FAERS Safety Report 4436107-2 (Version None)
Quarter: 2004Q3

REPORT INFORMATION
  Report Type: 
  Country: None (occurrence: None)
  Receive Date: 20040726
  Receipt Date: 20040804
  Transmission Date: 20050211
  Serious: No
  Sender: FDA-Public Use
  Company Number: USA030433204

PATIENT
  Age: 73 Year
  Sex: Female

DRUGS (4)
  1. FORTEO [Suspect]
     Dates: start: 20030301
  2. AZATHIOPRINE [Concomitant]
  3. CALCIUM [Concomitant]
  4. SINGULAIR [Concomitant]

REACTIONS (9)
  - ERYTHEMA [None]
  - FATIGUE [None]
  - FEELING ABNORMAL [None]
  - HEADACHE [None]
  - INJECTION SITE HAEMORRHAGE [None]
  - NAIL DISORDER [None]
  - POLLAKIURIA [None]
  - PRURITUS GENERALISED [None]
  - RASH [None]
